FAERS Safety Report 25609470 (Version 1)
Quarter: 2025Q3

REPORT INFORMATION
  Report Type: Report from Study
  Country: ZA (occurrence: ZA)
  Receive Date: 20250727
  Receipt Date: 20250727
  Transmission Date: 20251020
  Serious: Yes (Hospitalization)
  Sender: ABBVIE
  Company Number: ZA-ABBVIE-6386941

PATIENT
  Age: 76 Year
  Sex: Female

DRUGS (1)
  1. BOTOX [Suspect]
     Active Substance: ONABOTULINUMTOXINA
     Indication: Torticollis
     Route: 065
     Dates: start: 20230426

REACTIONS (2)
  - Hypotension [Unknown]
  - Torticollis [Unknown]

NARRATIVE: CASE EVENT DATE: 20250101
